FAERS Safety Report 7151447-4 (Version None)
Quarter: 2010Q4

REPORT INFORMATION
  Report Type: 
  Country: None (occurrence: None)
  Receive Date: 20101210
  Receipt Date: 20101130
  Transmission Date: 20110411
  Serious: Yes (Other)
  Sender: FDA-Public Use
  Company Number: GB-ABBOTT-10P-167-0677464-00

PATIENT
  Sex: Male
  Weight: 76.2 kg

DRUGS (6)
  1. HUMIRA [Suspect]
     Indication: CROHN'S DISEASE
     Route: 058
     Dates: start: 20100625, end: 20100920
  2. HUMIRA [Suspect]
     Route: 058
  3. MEZAVANT [Concomitant]
     Indication: PRODUCT USED FOR UNKNOWN INDICATION
  4. AZATHIOPRINE [Concomitant]
     Indication: CROHN'S DISEASE
     Dates: start: 20091003
  5. PREDNISOLONE [Concomitant]
     Indication: CROHN'S DISEASE
     Dates: start: 20091001
  6. MESALAZINE [Concomitant]
     Indication: CROHN'S DISEASE
     Route: 048
     Dates: start: 20100511

REACTIONS (6)
  - DERMATITIS PSORIASIFORM [None]
  - ECZEMA [None]
  - EPHELIDES [None]
  - PAIN IN EXTREMITY [None]
  - PSORIASIS [None]
  - SKIN LESION [None]
